FAERS Safety Report 7726506-5 (Version None)
Quarter: 2011Q3

REPORT INFORMATION
  Report Type: 
  Country: None (occurrence: None)
  Receive Date: 20110902
  Receipt Date: 20110823
  Transmission Date: 20111222
  Serious: Yes (Hospitalization)
  Sender: FDA-Public Use
  Company Number: PHHO2011FR14359

PATIENT
  Sex: Female
  Weight: 90 kg

DRUGS (7)
  1. BACTRIM DS [Concomitant]
     Route: 048
  2. NEUPOGEN [Concomitant]
     Indication: APLASIA
     Dosage: UNK
     Route: 058
  3. CYTARABINE [Suspect]
     Indication: ACUTE LYMPHOCYTIC LEUKAEMIA
     Dosage: 5750 MG, BID
     Route: 042
     Dates: start: 20110714
  4. VALGANCICLOVIR [Concomitant]
     Indication: CYTOMEGALOVIRUS INFECTION
     Dosage: 450 MG, BID
     Route: 048
  5. POTASSIUM CHLORIDE [Concomitant]
     Indication: HYPOKALAEMIA
     Route: 048
  6. METHOTREXATE [Suspect]
     Indication: ACUTE LYMPHOCYTIC LEUKAEMIA
     Dosage: 960 MG, BID
     Route: 042
     Dates: start: 20110713
  7. IMATINIB MESYLATE [Suspect]
     Indication: ACUTE LYMPHOCYTIC LEUKAEMIA
     Dosage: 400 MG, BID
     Route: 048
     Dates: start: 20110713

REACTIONS (2)
  - FEBRILE NEUTROPENIA [None]
  - LUNG DISORDER [None]
